FAERS Safety Report 4868217-X (Version None)
Quarter: 2005Q4

REPORT INFORMATION
  Report Type: 
  Country: None (occurrence: None)
  Receive Date: 20051223
  Receipt Date: 20051213
  Transmission Date: 20060501
  Serious: Yes (Other)
  Sender: FDA-Public Use
  Company Number: 2005168168

PATIENT
  Age: 60 Year
  Sex: Male
  Weight: 90.7194 kg

DRUGS (10)
  1. VIAGRA [Suspect]
     Indication: ERECTILE DYSFUNCTION
     Dosage: (AS NECESSARY),
     Dates: start: 20050101
  2. WELLBUTRIN XL [Concomitant]
  3. VALSARTAN [Concomitant]
  4. WARFARIN SODIUM [Concomitant]
  5. DILTIAZEM [Concomitant]
  6. ALL OTHER THERAPEUTIC PRODUCTS (ALL OTHER THERAPEUTIC PRODUCTS) [Concomitant]
  7. FOSAMAX [Concomitant]
  8. ZYRTEC [Concomitant]
  9. SKELAXIN [Concomitant]
  10. CLONAZEPAM [Concomitant]

REACTIONS (4)
  - ATRIAL FIBRILLATION [None]
  - DRUG EFFECT DECREASED [None]
  - OESOPHAGEAL STENOSIS [None]
  - PHOTOSENSITIVITY REACTION [None]
